FAERS Safety Report 15790905 (Version 6)
Quarter: 2019Q1

REPORT INFORMATION
  Report Type: Spontaneous
  Country: US (occurrence: US)
  Receive Date: 20190104
  Receipt Date: 20190128
  Transmission Date: 20190417
  Serious: Yes (Hospitalization)
  Sender: FDA-Public Use
  Company Number: US-ACTELION-A-NJ2018-183951

PATIENT
  Age: 63 Year
  Sex: Male
  Weight: 84.81 kg

DRUGS (6)
  1. UPTRAVI [Suspect]
     Active Substance: SELEXIPAG
     Dosage: 1200 MCG, BID
     Route: 048
     Dates: start: 20181231
  2. OPSUMIT [Suspect]
     Active Substance: MACITENTAN
     Indication: PULMONARY ARTERIAL HYPERTENSION
     Dosage: 10 MG, QD
     Route: 048
  3. TADALAFIL. [Concomitant]
     Active Substance: TADALAFIL
  4. UPTRAVI [Suspect]
     Active Substance: SELEXIPAG
     Dosage: 1000 MCG, BID
     Route: 048
     Dates: start: 20181231
  5. UPTRAVI [Suspect]
     Active Substance: SELEXIPAG
     Indication: PULMONARY ARTERIAL HYPERTENSION
     Dosage: 400 MCG, BID
     Route: 048
  6. UPTRAVI [Suspect]
     Active Substance: SELEXIPAG
     Dosage: 600 MCG, BID
     Route: 048
     Dates: start: 20181217

REACTIONS (15)
  - Weight increased [Unknown]
  - Headache [Unknown]
  - Arthritis [Unknown]
  - Muscle spasms [Unknown]
  - Haematochezia [Unknown]
  - Ear pain [Unknown]
  - Blood glucose increased [Unknown]
  - Rectal haemorrhage [Unknown]
  - Pain in extremity [Unknown]
  - Constipation [Unknown]
  - Arthralgia [Unknown]
  - Pain [Unknown]
  - Drug intolerance [Unknown]
  - Oral pain [Unknown]
  - Pain in jaw [Unknown]
